FAERS Safety Report 8971950 (Version 3)
Quarter: 2017Q2

REPORT INFORMATION
  Report Type: Report from Study
  Country: US (occurrence: US)
  Receive Date: 20121218
  Receipt Date: 20170606
  Transmission Date: 20170830
  Serious: Yes (Hospitalization, Other)
  Sender: FDA-Public Use
  Company Number: US-ACTELION-A-US2012-76065

PATIENT
  Age: 61 Year
  Sex: Female
  Weight: 45.35 kg

DRUGS (3)
  1. COUMADIN [Concomitant]
     Active Substance: WARFARIN SODIUM
  2. TRACLEER [Suspect]
     Active Substance: BOSENTAN
     Indication: PULMONARY ARTERIAL HYPERTENSION
     Dosage: 125 MG, BID
     Route: 048
  3. TRACLEER [Suspect]
     Active Substance: BOSENTAN
     Dosage: UNK
     Route: 048

REACTIONS (8)
  - Productive cough [Unknown]
  - Breast cancer [Unknown]
  - Transfusion [Recovering/Resolving]
  - Haematoma evacuation [Recovering/Resolving]
  - Mastectomy [Recovering/Resolving]
  - Breast haematoma [Recovering/Resolving]
  - Weight increased [Unknown]
  - Breast prosthesis user [Recovering/Resolving]

NARRATIVE: CASE EVENT DATE: 20120329
